FAERS Safety Report 18122864 (Version 1)
Quarter: 2020Q3

REPORT INFORMATION
  Report Type: Spontaneous
  Country: US (occurrence: US)
  Receive Date: 20200806
  Receipt Date: 20200806
  Transmission Date: 20201103
  Serious: No
  Sender: FDA-Public Use
  Company Number: None

PATIENT
  Age: 27 Year
  Sex: Male

DRUGS (2)
  1. HUMIRA [Suspect]
     Active Substance: ADALIMUMAB
  2. HUMIRA [Concomitant]
     Active Substance: ADALIMUMAB
     Dates: start: 20200718

REACTIONS (4)
  - Wrong schedule [None]
  - Wrong technique in product usage process [None]
  - Extra dose administered [None]
  - Product communication issue [None]

NARRATIVE: CASE EVENT DATE: 20200718
